FAERS Safety Report 5126496-8 (Version None)
Quarter: 2006Q4

REPORT INFORMATION
  Report Type: 
  Country: None (occurrence: None)
  Receive Date: 20061010
  Receipt Date: 20060926
  Transmission Date: 20070319
  Serious: Yes (Other)
  Sender: FDA-Public Use
  Company Number: US-2006-026628

PATIENT
  Age: 51 Year
  Sex: Male
  Weight: 76.2 kg

DRUGS (5)
  1. BETASERON [Suspect]
     Indication: RELAPSING-REMITTING MULTIPLE SCLEROSIS
     Dosage: 8 MIU, EVERY 2D, SUBCUTANEOUS
     Route: 058
     Dates: start: 20040220
  2. GLUCOPHAGE [Concomitant]
  3. EFFEXOR [Concomitant]
  4. BACLOFEN [Concomitant]
  5. KEFLEX [Concomitant]

REACTIONS (3)
  - BLOOD GLUCOSE INCREASED [None]
  - POLLAKIURIA [None]
  - THIRST [None]
